FAERS Safety Report 25367288 (Version 2)
Quarter: 2025Q4

REPORT INFORMATION
  Report Type: Spontaneous
  Country: EU (occurrence: EU)
  Receive Date: 20250528
  Receipt Date: 20251030
  Transmission Date: 20260117
  Serious: Yes (Other)
  Sender: RANBAXY
  Company Number: EU-SUN PHARMACEUTICAL INDUSTRIES LTD-2025RR-509732

PATIENT
  Age: 85 Year
  Sex: Female

DRUGS (7)
  1. VENLAFAXINE [Suspect]
     Active Substance: VENLAFAXINE HYDROCHLORIDE
     Indication: Depression
     Dosage: 37,5 MG
     Route: 048
     Dates: start: 20241104, end: 20241112
  2. CANDESARTAN EG 8 mg, comprim? s?cable [Concomitant]
     Indication: Product used for unknown indication
     Dosage: 8 MILLIGRAM, DAILY
     Route: 065
  3. LANSOPRAZOLE [Concomitant]
     Active Substance: LANSOPRAZOLE
     Indication: Product used for unknown indication
     Dosage: 15 MILLIGRAM, DAILY
     Route: 065
  4. OXAZEPAM [Concomitant]
     Active Substance: OXAZEPAM
     Indication: Product used for unknown indication
     Dosage: ? LA DEMANDE
     Route: 065
  5. PAROXETINE EG 20 mg, comprim? pellicul? s?cable [Concomitant]
     Indication: Product used for unknown indication
     Dosage: 20 MILLIGRAM
     Route: 065
  6. CALCIDOSE 500, poudre pour suspension buvable en sachet [Concomitant]
     Indication: Product used for unknown indication
     Dosage: 500 MILLIGRAM, BID
     Route: 065
  7. ZYMAD 50 000 UI, solution buvable en ampoule [Concomitant]
     Indication: Product used for unknown indication
     Dosage: 2 MILLILITER, MONTHLY
     Route: 065

REACTIONS (1)
  - Atrial flutter [Recovered/Resolved]

NARRATIVE: CASE EVENT DATE: 20241112
